FAERS Safety Report 9859453 (Version 1)
Quarter: 2014Q1

REPORT INFORMATION
  Report Type: Spontaneous
  Country: US (occurrence: US)
  Receive Date: 20140131
  Receipt Date: 20140131
  Transmission Date: 20141002
  Serious: No
  Sender: FDA-Public Use
  Company Number: US-PFIZER INC-2014028878

PATIENT
  Age: 28 Year
  Sex: Female
  Weight: 126 kg

DRUGS (5)
  1. LYRICA [Suspect]
     Indication: DIABETIC NEUROPATHY
     Dosage: UNK
     Dates: start: 201312
  2. LYRICA [Suspect]
     Indication: PAIN IN EXTREMITY
  3. LYRICA [Suspect]
     Indication: PAIN IN EXTREMITY
  4. PERCOCET [Concomitant]
     Dosage: 5/325 MG, 2X/DAY
  5. VALIUM [Concomitant]
     Dosage: 5 MG, 1X/DAY

REACTIONS (2)
  - Feeling abnormal [Unknown]
  - Pain in extremity [Unknown]
